FAERS Safety Report 21775399 (Version 2)
Quarter: 2023Q1

REPORT INFORMATION
  Report Type: Report from Study
  Country: US (occurrence: US)
  Receive Date: 20221225
  Receipt Date: 20230111
  Transmission Date: 20230417
  Serious: No
  Sender: FDA-Public Use
  Company Number: US-SANOFI-01414241

PATIENT
  Age: 40 Year
  Sex: Female

DRUGS (2)
  1. DUPILUMAB [Suspect]
     Active Substance: DUPILUMAB
     Indication: Dermatitis atopic
     Dosage: 300 MG, QOW
     Route: 058
  2. EMGALITY [Suspect]
     Active Substance: GALCANEZUMAB-GNLM
     Indication: Migraine

REACTIONS (6)
  - Injection site pain [Unknown]
  - Skin reaction [Unknown]
  - Pigmentation disorder [Unknown]
  - Injection site swelling [Unknown]
  - Dry skin [Unknown]
  - Skin discolouration [Unknown]
